FAERS Safety Report 6592392 (Version 2)
Quarter: 2020Q3

REPORT INFORMATION
  Report Type: Report from Study
  Country: US (occurrence: US)
  Receive Date: 20080325
  Receipt Date: 20080404
  Transmission Date: 20201105
  Serious: Yes (Death)
  Sender: FDA-Public Use
  Company Number: US-ROCHE-553702

PATIENT
  Age: 90 Year
  Sex: Female

DRUGS (1)
  1. IBANDRONIC ACID. [Suspect]
     Active Substance: IBANDRONIC ACID
     Indication: BONE DENSITOMETRY
     Route: 065
     Dates: start: 200612

REACTIONS (1)
  - Myocardial ischaemia [Fatal]
